FAERS Safety Report 25417641 (Version 2)
Quarter: 2025Q3

REPORT INFORMATION
  Report Type: Spontaneous
  Country: CA (occurrence: CA)
  Receive Date: 20250610
  Receipt Date: 20250716
  Transmission Date: 20251021
  Serious: Yes (Hospitalization, Other)
  Sender: TEVA
  Company Number: CA-TEVA-VS-3340306

PATIENT
  Age: 65 Year
  Sex: Female

DRUGS (38)
  1. BUPROPION [Suspect]
     Active Substance: BUPROPION
     Indication: Depression
     Route: 065
  2. BUPROPION [Suspect]
     Active Substance: BUPROPION
     Indication: Depression
     Route: 065
  3. TRINTELLIX [Suspect]
     Active Substance: VORTIOXETINE HYDROBROMIDE
     Indication: Major depression
     Dosage: DOSE FORM ; NOT SPECIFIED
     Route: 065
  4. BUPROPION [Suspect]
     Active Substance: BUPROPION
     Indication: Depression
     Route: 065
  5. DAYVIGO [Suspect]
     Active Substance: LEMBOREXANT
     Indication: Depression
     Route: 048
  6. CLOMIPRAMINE [Suspect]
     Active Substance: CLOMIPRAMINE
     Indication: Depression
     Route: 065
  7. LEVOMEPROMAZINE [Suspect]
     Active Substance: LEVOMEPROMAZINE
     Indication: Depression
     Route: 065
  8. ESCITALOPRAM OXALATE [Suspect]
     Active Substance: ESCITALOPRAM OXALATE
     Indication: Depression
     Route: 065
  9. OLANZAPINE [Suspect]
     Active Substance: OLANZAPINE
     Indication: Depression
     Route: 065
  10. LORAZEPAM [Suspect]
     Active Substance: LORAZEPAM
     Indication: Depression
     Route: 065
  11. MIRTAZAPINE [Suspect]
     Active Substance: MIRTAZAPINE
     Indication: Anticoagulant therapy
     Route: 065
  12. MIRTAZAPINE [Suspect]
     Active Substance: MIRTAZAPINE
     Indication: Anticoagulant therapy
     Route: 065
  13. ZOLPIDEM [Suspect]
     Active Substance: ZOLPIDEM TARTRATE
     Indication: Depression
     Route: 065
  14. VORTIOXETINE [Suspect]
     Active Substance: VORTIOXETINE
     Indication: Depression
     Route: 065
  15. ZOPICLONE [Suspect]
     Active Substance: ZOPICLONE
     Indication: Depression
     Route: 065
  16. LURASIDONE HYDROCHLORIDE [Suspect]
     Active Substance: LURASIDONE HYDROCHLORIDE
     Indication: Depression
     Route: 065
  17. LURASIDONE HYDROCHLORIDE [Suspect]
     Active Substance: LURASIDONE HYDROCHLORIDE
     Indication: Depression
     Dosage: DOSE FORM: NOT SPECIFIED
     Route: 065
  18. QUETIAPINE [Suspect]
     Active Substance: QUETIAPINE
     Indication: Depression
     Route: 048
  19. GABAPENTIN [Suspect]
     Active Substance: GABAPENTIN
     Indication: Depression
     Route: 065
  20. FLUVOXAMINE [Suspect]
     Active Substance: FLUVOXAMINE
     Indication: Depression
     Route: 065
  21. VENLAFAXINE HYDROCHLORIDE [Suspect]
     Active Substance: VENLAFAXINE HYDROCHLORIDE
     Indication: Major depression
     Route: 065
  22. PANTOPRAZOLE [Suspect]
     Active Substance: PANTOPRAZOLE
     Indication: Gastrooesophageal reflux disease
     Route: 065
  23. FLUOXETINE [Suspect]
     Active Substance: FLUOXETINE HYDROCHLORIDE
     Indication: Depression
     Route: 065
  24. RISPERIDONE [Suspect]
     Active Substance: RISPERIDONE
     Indication: Depression
     Route: 065
  25. PRAMIPEXOLE [Suspect]
     Active Substance: PRAMIPEXOLE
     Indication: Depression
     Route: 065
  26. PRAMIPEXOLE [Suspect]
     Active Substance: PRAMIPEXOLE
     Indication: Depression
     Dosage: DOSE FORM: NOT SPECIFIED
     Route: 065
  27. PAROXETINE HYDROCHLORIDE [Suspect]
     Active Substance: PAROXETINE HYDROCHLORIDE
     Indication: Depression
     Route: 065
  28. LEMBOREXANT [Suspect]
     Active Substance: LEMBOREXANT
     Indication: Insomnia
     Route: 048
  29. LEMBOREXANT [Suspect]
     Active Substance: LEMBOREXANT
     Indication: Insomnia
     Route: 065
  30. LEVOMEPROMAZINE MALEATE [Suspect]
     Active Substance: LEVOMEPROMAZINE MALEATE
     Indication: Depression
     Route: 065
  31. LAMOTRIGINE [Suspect]
     Active Substance: LAMOTRIGINE
     Indication: Depression
     Route: 065
  32. APIXABAN [Suspect]
     Active Substance: APIXABAN
     Indication: Depression
     Route: 065
  33. BREXPIPRAZOLE [Suspect]
     Active Substance: BREXPIPRAZOLE
     Indication: Insomnia
     Route: 065
  34. BREXPIPRAZOLE [Suspect]
     Active Substance: BREXPIPRAZOLE
     Indication: Insomnia
     Route: 065
  35. CANNABIS SATIVA FLOWERING TOP [Suspect]
     Active Substance: CANNABIS SATIVA FLOWERING TOP
     Indication: Insomnia
     Route: 065
  36. PANTOPRAZOLE [Concomitant]
     Active Substance: PANTOPRAZOLE
     Indication: Gastrooesophageal reflux disease
     Dosage: DOSE FORM : NOT SPECIFIED
     Route: 065
  37. APIXABAN [Concomitant]
     Active Substance: APIXABAN
     Indication: Deep vein thrombosis
     Route: 065
  38. APIXABAN [Concomitant]
     Active Substance: APIXABAN
     Indication: Deep vein thrombosis
     Route: 065

REACTIONS (7)
  - Suicidal ideation [Recovered/Resolved]
  - Adverse drug reaction [Recovered/Resolved]
  - Suicide attempt [Recovered/Resolved]
  - Drug ineffective [Recovered/Resolved]
  - Condition aggravated [Recovered/Resolved]
  - Therapy non-responder [Recovered/Resolved]
  - Underdose [Recovered/Resolved]
